FAERS Safety Report 7131125-8 (Version None)
Quarter: 2010Q4

REPORT INFORMATION
  Report Type: 
  Country: None (occurrence: None)
  Receive Date: 20101201
  Receipt Date: 20101123
  Transmission Date: 20110411
  Serious: Yes (Other)
  Sender: FDA-Public Use
  Company Number: GXBR2010US01998

PATIENT
  Sex: Male

DRUGS (1)
  1. OMNITROPE [Suspect]
     Indication: DWARFISM
     Dosage: 2.8 MG, QD
     Dates: start: 20101001, end: 20101101

REACTIONS (2)
  - ANXIETY [None]
  - HALLUCINATION [None]
